FAERS Safety Report 9229592 (Version 4)
Quarter: 2014Q1

REPORT INFORMATION
  Report Type: Spontaneous
  Country: US (occurrence: US)
  Receive Date: 20130414
  Receipt Date: 20140328
  Transmission Date: 20141002
  Serious: Yes (Hospitalization)
  Sender: FDA-Public Use
  Company Number: US-B.I. PHARMACEUTICALS,INC./RIDGEFIELD-2013-BI-09707BP

PATIENT
  Age: 73 Year
  Sex: Female
  Weight: 53.52 kg

DRUGS (9)
  1. PRADAXA [Suspect]
     Indication: CEREBROVASCULAR ACCIDENT PROPHYLAXIS
     Dosage: 300 MG
     Route: 065
     Dates: start: 20120130, end: 20120802
  2. PRADAXA [Suspect]
     Indication: THROMBOSIS PROPHYLAXIS
  3. PRADAXA [Suspect]
     Indication: ATRIAL FIBRILLATION
  4. ATORVASTATIN [Concomitant]
     Indication: BLOOD CHOLESTEROL INCREASED
     Dosage: 80 MG
     Route: 065
  5. ATENOLOL CHLOROTHIAZIDE [Concomitant]
     Indication: HYPERTENSION
     Route: 065
  6. PROPAFENONE [Concomitant]
     Dosage: 300 MG
     Route: 065
  7. ALPRAZOLAM [Concomitant]
     Route: 065
  8. TRAMADOL [Concomitant]
     Route: 065
  9. OMEPRAZOLE [Concomitant]
     Indication: GASTROOESOPHAGEAL REFLUX DISEASE
     Dosage: 20 MG
     Route: 065

REACTIONS (4)
  - Lower gastrointestinal haemorrhage [Recovered/Resolved]
  - Haemorrhagic anaemia [Unknown]
  - Syncope [Unknown]
  - Epistaxis [Unknown]
